FAERS Safety Report 23271668 (Version 1)
Quarter: 2023Q4

REPORT INFORMATION
  Report Type: Spontaneous
  Country: FR (occurrence: FR)
  Receive Date: 20231207
  Receipt Date: 20231207
  Transmission Date: 20240109
  Serious: Yes (Other)
  Sender: FDA-Public Use
  Company Number: FR-MYLANLABS-2017M1036498

PATIENT
  Age: 58 Year
  Sex: Female

DRUGS (8)
  1. PREGABALIN [Suspect]
     Active Substance: PREGABALIN
     Indication: Fibromyalgia
     Dosage: UNK
     Route: 065
  2. PREGABALIN [Suspect]
     Active Substance: PREGABALIN
     Dosage: 300 MG, BID (600 MILLIGRAM, QD)
     Route: 065
  3. PREGABALIN [Suspect]
     Active Substance: PREGABALIN
     Dosage: 150 MG, BID (300 MILLIGRAM, QD)
     Route: 065
     Dates: end: 201511
  4. CANDESARTAN CILEXETIL\HYDROCHLOROTHIAZIDE [Concomitant]
     Active Substance: CANDESARTAN CILEXETIL\HYDROCHLOROTHIAZIDE
     Indication: Hypertension
     Dosage: UNK
     Route: 065
  5. CLOMIPRAMINE [Concomitant]
     Active Substance: CLOMIPRAMINE
     Indication: Adjustment disorder with depressed mood
     Dosage: 75 MG, UNK
     Route: 065
  6. BROMAZEPAM [Concomitant]
     Active Substance: BROMAZEPAM
     Indication: Adjustment disorder with depressed mood
     Dosage: UNK
     Route: 065
  7. PROPRANOLOL [Concomitant]
     Active Substance: PROPRANOLOL HYDROCHLORIDE
     Indication: Postural tremor
     Dosage: UNK
     Route: 065
  8. ACROSAR D [Concomitant]
     Indication: Hypertension
     Dosage: UNK
     Route: 065

REACTIONS (11)
  - Parkinsonism [Recovering/Resolving]
  - Facial paralysis [Recovering/Resolving]
  - Postural tremor [Recovering/Resolving]
  - Bradykinesia [Recovering/Resolving]
  - Leukoencephalopathy [Unknown]
  - Cogwheel rigidity [Recovering/Resolving]
  - Reduced facial expression [Recovered/Resolved]
  - Parkinson^s disease [Recovered/Resolved with Sequelae]
  - Weight increased [Recovering/Resolving]
  - Myoclonus [Recovering/Resolving]
  - Tremor [Recovering/Resolving]
